FAERS Safety Report 18339061 (Version 1)
Quarter: 2020Q4

REPORT INFORMATION
  Report Type: Spontaneous
  Country: BR (occurrence: BR)
  Receive Date: 20201002
  Receipt Date: 20201002
  Transmission Date: 20210113
  Serious: Yes (Other)
  Sender: FDA-Public Use
  Company Number: BR-BAYER-2019-070302

PATIENT
  Age: 45 Year
  Sex: Female

DRUGS (7)
  1. ZOLPIDEM [Concomitant]
     Active Substance: ZOLPIDEM TARTRATE
     Indication: INSOMNIA
     Dosage: 1 DF, QD
     Route: 048
  2. MIRENA [Suspect]
     Active Substance: LEVONORGESTREL
     Indication: MENSTRUAL CYCLE MANAGEMENT
  3. STABIL [PRAMIPEXOLE DIHYDROCHLORIDE] [Concomitant]
     Indication: RESTLESS LEGS SYNDROME
     Dosage: 1 DF, QD
     Route: 048
  4. SERTRALINA [SERTRALINE] [Concomitant]
     Active Substance: SERTRALINE HYDROCHLORIDE
     Indication: DEPRESSION
     Dosage: 1 DF, QID
     Route: 048
  5. MIRENA [Suspect]
     Active Substance: LEVONORGESTREL
     Indication: CONTRACEPTION
     Dosage: 20 ?G PER DAY CONTINUOUSLY
     Route: 015
     Dates: start: 20190202
  6. SERTRALINA [SERTRALINE] [Concomitant]
     Active Substance: SERTRALINE HYDROCHLORIDE
     Indication: ANXIETY
  7. SERTRALINA [SERTRALINE] [Concomitant]
     Active Substance: SERTRALINE HYDROCHLORIDE
     Indication: PREMENSTRUAL SYNDROME

REACTIONS (5)
  - Menorrhagia [Recovering/Resolving]
  - Menstruation irregular [Not Recovered/Not Resolved]
  - Hypomenorrhoea [None]
  - Bone tuberculosis [None]
  - Benign breast neoplasm [None]

NARRATIVE: CASE EVENT DATE: 2019
